FAERS Safety Report 24556963 (Version 1)
Quarter: 2024Q4

REPORT INFORMATION
  Report Type: Spontaneous
  Country: CN (occurrence: CN)
  Receive Date: 20241028
  Receipt Date: 20241028
  Transmission Date: 20250115
  Serious: Yes (Hospitalization)
  Sender: BAXTER
  Company Number: None

PATIENT
  Age: 71 Year
  Sex: Male
  Weight: 60 kg

DRUGS (1)
  1. CLINOMEL [Suspect]
     Active Substance: AMINO ACIDS\DEXTROSE\ELECTROLYTES NOS\SOYBEAN OIL
     Indication: Acquired immunodeficiency syndrome
     Dosage: 1000 ML ONCE IN ONE DAY AT 14:00
     Route: 041
     Dates: start: 20241007, end: 20241007

REACTIONS (7)
  - Tachypnoea [Recovering/Resolving]
  - Cough [Recovering/Resolving]
  - Productive cough [Unknown]
  - Asthenia [Unknown]
  - Palpitations [Unknown]
  - Dyspnoea [Recovering/Resolving]
  - Decreased appetite [Unknown]

NARRATIVE: CASE EVENT DATE: 20241007
